FAERS Safety Report 8007588-2 (Version None)
Quarter: 2011Q4

REPORT INFORMATION
  Report Type: 
  Country: None (occurrence: None)
  Receive Date: 20111227
  Receipt Date: 20111219
  Transmission Date: 20120403
  Serious: Yes (Other)
  Sender: FDA-Public Use
  Company Number: US-BAYER-2011-122312

PATIENT
  Age: 22 Year
  Sex: Female

DRUGS (2)
  1. YAZ [Suspect]
     Dosage: UNK
     Dates: start: 20070101, end: 20070301
  2. YAZ [Suspect]
     Dosage: UNK
     Dates: start: 20090831, end: 20091203

REACTIONS (2)
  - PULMONARY EMBOLISM [None]
  - INJURY [None]
